FAERS Safety Report 11308308 (Version 1)
Quarter: 2015Q3

REPORT INFORMATION
  Report Type: Spontaneous
  Country: CA (occurrence: CA)
  Receive Date: 20150724
  Receipt Date: 20150724
  Transmission Date: 20151125
  Serious: Yes (Other)
  Sender: FDA-Public Use
  Company Number: CA-TEVA-579923ACC

PATIENT
  Age: 68 Year
  Sex: Female

DRUGS (2)
  1. ROSUVASTATIN [Suspect]
     Active Substance: ROSUVASTATIN
     Indication: BLOOD CHOLESTEROL INCREASED
     Dosage: 5 MILLIGRAM DAILY;
     Route: 048
  2. RAMIPRIL. [Suspect]
     Active Substance: RAMIPRIL
     Indication: BLOOD PRESSURE MEASUREMENT
     Dosage: 2.5 MILLIGRAM DAILY;
     Route: 048

REACTIONS (3)
  - Energy increased [Unknown]
  - Palpitations [Unknown]
  - Insomnia [Unknown]
